FAERS Safety Report 4488962-8 (Version None)
Quarter: 2004Q4

REPORT INFORMATION
  Report Type: 
  Country: None (occurrence: None)
  Receive Date: 20041029
  Receipt Date: 20041018
  Transmission Date: 20050328
  Serious: Yes (Other)
  Sender: FDA-Public Use
  Company Number: 200420536GDDC

PATIENT
  Age: 34 Year
  Sex: Female
  Weight: 56.5 kg

DRUGS (3)
  1. REVENIL EXPECTORANTE [Suspect]
     Route: 048
     Dates: start: 20041005, end: 20041010
  2. DIMETAPP [Concomitant]
     Dosage: DOSE: UNK
     Route: 048
     Dates: start: 20041005, end: 20041010
  3. DICLOFENAC SODIUM [Concomitant]
     Indication: PHARYNGOLARYNGEAL PAIN
     Dosage: DOSE: UNK
     Route: 048
     Dates: start: 20041005, end: 20041010

REACTIONS (7)
  - ASTHENIA [None]
  - DYSPNOEA [None]
  - HEADACHE [None]
  - HYPOTENSION [None]
  - INFLUENZA [None]
  - TACHYCARDIA [None]
  - TREMOR [None]
